FAERS Safety Report 7371412-1 (Version None)
Quarter: 2011Q1

REPORT INFORMATION
  Report Type: 
  Country: None (occurrence: None)
  Receive Date: 20110324
  Receipt Date: 20110322
  Transmission Date: 20110831
  Serious: Yes (Other)
  Sender: FDA-Public Use
  Company Number: GB-TEVA-272707ISR

PATIENT
  Age: 49 Year
  Sex: Male

DRUGS (2)
  1. LAMOTRIGINE [Suspect]
     Indication: EPILEPSY
     Route: 048
     Dates: start: 20050101
  2. ZONISAMIDE [Suspect]
     Indication: EPILEPSY
     Route: 048
     Dates: start: 20090701, end: 20100101

REACTIONS (1)
  - MALIGNANT MELANOMA [None]
